FAERS Safety Report 10905387 (Version 3)
Quarter: 2015Q2

REPORT INFORMATION
  Report Type: Spontaneous
  Country: US (occurrence: US)
  Receive Date: 20150311
  Receipt Date: 20150616
  Transmission Date: 20150821
  Serious: Yes (Hospitalization, Other)
  Sender: FDA-Public Use
  Company Number: US-009507513-1109USA00998

PATIENT
  Sex: Female
  Weight: 77.98 kg

DRUGS (3)
  1. ALENDRONATE SODIUM. [Suspect]
     Active Substance: ALENDRONATE SODIUM
     Indication: BONE DENSITY DECREASED
     Dosage: 70 MG, UNK
     Route: 048
     Dates: start: 2009
  2. FOSAMAX PLUS D [Suspect]
     Active Substance: ALENDRONATE SODIUM\CHOLECALCIFEROL
     Indication: BONE DENSITY DECREASED
     Dosage: 70 MG, UNK
     Route: 048
     Dates: start: 1999, end: 2008
  3. FOSAMAX [Suspect]
     Active Substance: ALENDRONATE SODIUM
     Indication: BONE DENSITY DECREASED
     Dosage: 10 MG, UNK
     Route: 048
     Dates: start: 19990913, end: 2008

REACTIONS (42)
  - Femur fracture [Recovered/Resolved]
  - Syncope [Unknown]
  - Hypertension [Unknown]
  - Oedema peripheral [Unknown]
  - Intramedullary rod insertion [Unknown]
  - Spinal fusion surgery [Unknown]
  - Hyperlipidaemia [Unknown]
  - Irritable bowel syndrome [Unknown]
  - Neuropathy peripheral [Unknown]
  - Device dislocation [Unknown]
  - Urinary incontinence [Unknown]
  - Confusional state [Unknown]
  - Limb injury [Unknown]
  - Device breakage [Unknown]
  - Asthenia [Unknown]
  - Fibromyalgia [Unknown]
  - Osteopenia [Unknown]
  - Back pain [Not Recovered/Not Resolved]
  - Abdominal distension [Unknown]
  - Hypotension [Unknown]
  - Intramedullary rod insertion [Unknown]
  - Intramedullary rod insertion [Unknown]
  - Fracture nonunion [Unknown]
  - Medical device removal [Unknown]
  - Spinal corpectomy [Unknown]
  - Spinal laminectomy [Unknown]
  - Spinal fusion surgery [Unknown]
  - Soft tissue disorder [Unknown]
  - Osteoarthritis [Unknown]
  - Urine analysis abnormal [Unknown]
  - Femur fracture [Unknown]
  - Intervertebral disc protrusion [Unknown]
  - Bone disorder [Unknown]
  - Incisional drainage [Unknown]
  - Spinal column stenosis [Unknown]
  - Anaemia [Unknown]
  - Bone graft [Unknown]
  - Catheterisation cardiac [Unknown]
  - Spinal fusion surgery [Unknown]
  - Spinal fusion surgery [Unknown]
  - Osteoporosis [Unknown]
  - Sensory disturbance [Unknown]

NARRATIVE: CASE EVENT DATE: 20000616
